FAERS Safety Report 8122855-X (Version None)
Quarter: 2012Q1

REPORT INFORMATION
  Report Type: 
  Country: None (occurrence: None)
  Receive Date: 20120208
  Receipt Date: 20120202
  Transmission Date: 20120608
  Serious: Yes (Other)
  Sender: FDA-Public Use
  Company Number: CZ-ROXANE LABORATORIES, INC.-2012-RO-00594RO

PATIENT
  Age: 23 Year
  Sex: Male

DRUGS (6)
  1. RISPERIDONE [Suspect]
     Dosage: 4 MG
     Route: 048
  2. METHOTRIMEPRAZINE [Suspect]
     Indication: SCHIZOPHRENIFORM DISORDER
  3. ZUCLOPENTHIXOL [Suspect]
     Indication: SCHIZOPHRENIFORM DISORDER
  4. RISPERIDONE [Suspect]
     Indication: SCHIZOPHRENIFORM DISORDER
  5. PROMETHAZINE [Suspect]
     Indication: SCHIZOPHRENIFORM DISORDER
  6. BIPERIDEN HYDROCHLORIDE TAB [Suspect]
     Indication: EXTRAPYRAMIDAL DISORDER

REACTIONS (5)
  - WITHDRAWAL SYNDROME [None]
  - EXTRAPYRAMIDAL DISORDER [None]
  - DELUSION [None]
  - DRUG INEFFECTIVE [None]
  - HYPOCHONDRIASIS [None]
